FAERS Safety Report 7496340-2 (Version None)
Quarter: 2011Q2

REPORT INFORMATION
  Report Type: 
  Country: None (occurrence: None)
  Receive Date: 20110523
  Receipt Date: 20110517
  Transmission Date: 20111010
  Serious: Yes (Death, Hospitalization, Other)
  Sender: FDA-Public Use
  Company Number: US-ELI_LILLY_AND_COMPANY-US201010003747

PATIENT
  Sex: Female

DRUGS (4)
  1. ALIMTA [Suspect]
     Indication: LUNG NEOPLASM MALIGNANT
     Dosage: 890 MG, OTHER (EVERY 3 WEEKS)
     Dates: start: 20101007
  2. VITAMIN B-12 [Concomitant]
  3. DECADRON [Concomitant]
  4. FOLIC ACID [Concomitant]

REACTIONS (5)
  - RASH [None]
  - OROPHARYNGEAL PAIN [None]
  - NEOPLASM MALIGNANT [None]
  - DYSPHAGIA [None]
  - PHARYNGITIS [None]
